FAERS Safety Report 6810689-5 (Version None)
Quarter: 2010Q2

REPORT INFORMATION
  Report Type: 
  Country: None (occurrence: None)
  Receive Date: 20100630
  Receipt Date: 20071119
  Transmission Date: 20101027
  Serious: No
  Sender: FDA-Public Use
  Company Number: US-PFIZER INC-2007081207

PATIENT
  Sex: Female

DRUGS (2)
  1. ESTRING [Suspect]
     Dosage: 2 MG
     Route: 067
     Dates: start: 20070922, end: 20070922
  2. ESTROGENS [Concomitant]
     Route: 048

REACTIONS (1)
  - DEVICE LEAKAGE [None]
